FAERS Safety Report 7747491-6 (Version None)
Quarter: 2011Q3

REPORT INFORMATION
  Report Type: 
  Country: None (occurrence: None)
  Receive Date: 20110909
  Receipt Date: 20110826
  Transmission Date: 20111222
  Serious: Yes (Death)
  Sender: FDA-Public Use
  Company Number: DSJ-2011-08684

PATIENT
  Age: 52 Year
  Sex: Male
  Weight: 70.5 kg

DRUGS (20)
  1. FLOMOX (CEFCAPENE PIVOXIL HYDROCHLORIDE) (TABLET) (CEFCAPENE PIVOXIL H [Suspect]
     Indication: INFECTION PROPHYLAXIS
     Dosage: 300 MG (300 MG, 1 IN 1 D), PER ORAL;
     Route: 048
     Dates: start: 20110421
  2. NORVASC [Suspect]
     Indication: HYPERTENSION
     Dosage: 5 MG (5 MG, 1 IN 1 D); 5 MG (5 MG, 1 IN 1 D); 2.5 MG (2.5 MG (2.5 MG, 1 IN 1 D); 5 MG (5 MG, 1 IN 1
     Dates: start: 20101204, end: 20101204
  3. NORVASC [Suspect]
     Indication: HYPERTENSION
     Dosage: 5 MG (5 MG, 1 IN 1 D); 5 MG (5 MG, 1 IN 1 D); 2.5 MG (2.5 MG (2.5 MG, 1 IN 1 D); 5 MG (5 MG, 1 IN 1
     Dates: start: 20110121, end: 20110203
  4. NORVASC [Suspect]
     Indication: HYPERTENSION
     Dosage: 5 MG (5 MG, 1 IN 1 D); 5 MG (5 MG, 1 IN 1 D); 2.5 MG (2.5 MG (2.5 MG, 1 IN 1 D); 5 MG (5 MG, 1 IN 1
     Dates: start: 20101206, end: 20101217
  5. NORVASC [Suspect]
     Indication: HYPERTENSION
     Dosage: 5 MG (5 MG, 1 IN 1 D); 5 MG (5 MG, 1 IN 1 D); 2.5 MG (2.5 MG (2.5 MG, 1 IN 1 D); 5 MG (5 MG, 1 IN 1
     Dates: start: 20110204, end: 20110425
  6. OLMESARTAN MEDOXOMIL [Suspect]
     Indication: HYPERTENSION
     Dosage: SEE IMAGE: PER ORAL
     Route: 048
     Dates: start: 20110107, end: 20110112
  7. OLMESARTAN MEDOXOMIL [Suspect]
     Indication: HYPERTENSION
     Dosage: SEE IMAGE: PER ORAL
     Route: 048
     Dates: start: 20110107, end: 20110112
  8. OLMESARTAN MEDOXOMIL [Suspect]
     Indication: HYPERTENSION
     Dosage: SEE IMAGE: PER ORAL
     Route: 048
     Dates: start: 20110113, end: 20110113
  9. OLMESARTAN MEDOXOMIL [Suspect]
     Indication: HYPERTENSION
     Dosage: SEE IMAGE: PER ORAL
     Route: 048
     Dates: start: 20101225, end: 20110106
  10. OLMESARTAN MEDOXOMIL [Suspect]
     Indication: HYPERTENSION
     Dosage: SEE IMAGE: PER ORAL
     Route: 048
     Dates: start: 20101218, end: 20101224
  11. OLMESARTAN MEDOXOMIL [Suspect]
     Indication: HYPERTENSION
     Dosage: SEE IMAGE: PER ORAL
     Route: 048
     Dates: start: 20110114, end: 20110425
  12. THYRADINE S (LEVOTHYROXINE SODIUM) (TABLET) (LEVOTHYROXINE SODIUM) [Suspect]
     Indication: THYROID FUNCTION TEST ABNORMAL
     Dosage: 50 MCG (50 MCG, 1 IN 1 D), PER ORAL
     Route: 048
  13. AXITINIB [Suspect]
     Indication: METASTATIC RENAL CELL CARCINOMA
     Dosage: 10 MG (5 MG, 2 IN 1 D), PER ORAL; 6 MG, (3 MG, 2 IN 1 D), PER ORAL
     Route: 048
     Dates: start: 20110114, end: 20110425
  14. AXITINIB [Suspect]
     Indication: METASTATIC RENAL CELL CARCINOMA
     Dosage: 10 MG (5 MG, 2 IN 1 D), PER ORAL; 6 MG, (3 MG, 2 IN 1 D), PER ORAL
     Route: 048
     Dates: start: 20101126, end: 20110110
  15. LOXONIN (LOXOPROFEN SODIUM) (TABLET) (LOXOPROFEN SODIUM) [Suspect]
     Indication: HEADACHE
     Dosage: 60 MG (20 MG, 3 IN 1 D), PER ORAL; 60 MG (60 MG, 1 IN 1 D), PER ORAL
     Route: 048
     Dates: start: 20110427
  16. LOXONIN (LOXOPROFEN SODIUM) (TABLET) (LOXOPROFEN SODIUM) [Suspect]
     Indication: PAIN
     Dosage: 60 MG (20 MG, 3 IN 1 D), PER ORAL; 60 MG (60 MG, 1 IN 1 D), PER ORAL
     Route: 048
     Dates: start: 20110427
  17. LOXONIN (LOXOPROFEN SODIUM) (TABLET) (LOXOPROFEN SODIUM) [Suspect]
     Indication: INFECTION PROPHYLAXIS
     Dosage: 60 MG (20 MG, 3 IN 1 D), PER ORAL; 60 MG (60 MG, 1 IN 1 D), PER ORAL
     Route: 048
     Dates: start: 20110427
  18. LOXONIN (LOXOPROFEN SODIUM) (TABLET) (LOXOPROFEN SODIUM) [Suspect]
     Indication: HEADACHE
     Dosage: 60 MG (20 MG, 3 IN 1 D), PER ORAL; 60 MG (60 MG, 1 IN 1 D), PER ORAL
     Route: 048
     Dates: end: 20110121
  19. LOXONIN (LOXOPROFEN SODIUM) (TABLET) (LOXOPROFEN SODIUM) [Suspect]
     Indication: PAIN
     Dosage: 60 MG (20 MG, 3 IN 1 D), PER ORAL; 60 MG (60 MG, 1 IN 1 D), PER ORAL
     Route: 048
     Dates: end: 20110121
  20. LOXONIN (LOXOPROFEN SODIUM) (TABLET) (LOXOPROFEN SODIUM) [Suspect]
     Indication: INFECTION PROPHYLAXIS
     Dosage: 60 MG (20 MG, 3 IN 1 D), PER ORAL; 60 MG (60 MG, 1 IN 1 D), PER ORAL
     Route: 048
     Dates: end: 20110121

REACTIONS (11)
  - THROAT TIGHTNESS [None]
  - ISCHAEMIA [None]
  - VENTRICULAR EXTRASYSTOLES [None]
  - MUSCLE TIGHTNESS [None]
  - CYANOSIS [None]
  - VENTRICULAR TACHYCARDIA [None]
  - ELECTROCARDIOGRAM ST-T CHANGE [None]
  - CIRCULATORY COLLAPSE [None]
  - CARDIO-RESPIRATORY ARREST [None]
  - LIPOMA [None]
  - PULSELESS ELECTRICAL ACTIVITY [None]
